FAERS Safety Report 4467637-5 (Version None)
Quarter: 2004Q4

REPORT INFORMATION
  Report Type: 
  Country: None (occurrence: None)
  Receive Date: 20041001
  Receipt Date: 20040923
  Transmission Date: 20050328
  Serious: Yes (Hospitalization)
  Sender: FDA-Public Use
  Company Number: 6010654F

PATIENT

DRUGS (1)
  1. NIASPAN [Suspect]
     Indication: DYSLIPIDAEMIA

REACTIONS (1)
  - LEFT VENTRICULAR FAILURE [None]
